FAERS Safety Report 16906924 (Version 4)
Quarter: 2019Q4

REPORT INFORMATION
  Report Type: Spontaneous
  Country: US (occurrence: US)
  Receive Date: 20191011
  Receipt Date: 20191107
  Transmission Date: 20200122
  Serious: No
  Sender: FDA-Public Use
  Company Number: US-UNITED THERAPEUTICS-UNT-2019-016099

PATIENT
  Sex: Female
  Weight: 53.61 kg

DRUGS (3)
  1. REMODULIN [Suspect]
     Active Substance: TREPROSTINIL
     Dosage: UNK
     Route: 041
  2. TADALAFIL. [Concomitant]
     Active Substance: TADALAFIL
     Indication: PRODUCT USED FOR UNKNOWN INDICATION
     Dosage: UNK
     Route: 065
  3. REMODULIN [Suspect]
     Active Substance: TREPROSTINIL
     Indication: PULMONARY ARTERIAL HYPERTENSION
     Dosage: 0.080 ?G/KG, CONTINUING
     Route: 041
     Dates: start: 20190903

REACTIONS (8)
  - Injection site rash [Unknown]
  - Injection site extravasation [Unknown]
  - Skin lesion [Unknown]
  - Dermatitis contact [Unknown]
  - Catheter site related reaction [Unknown]
  - Injection site scab [Unknown]
  - Injection site irritation [Unknown]
  - Post procedural infection [Unknown]

NARRATIVE: CASE EVENT DATE: 2019
